FAERS Safety Report 4280176-X (Version None)
Quarter: 2004Q1

REPORT INFORMATION
  Report Type: 
  Country: None (occurrence: None)
  Receive Date: 20040126
  Receipt Date: 20040108
  Transmission Date: 20041129
  Serious: Yes (Hospitalization)
  Sender: FDA-Public Use
  Company Number: 190077

PATIENT
  Age: 37 Year
  Sex: Female
  Weight: 86.1834 kg

DRUGS (2)
  1. AVONEX [Suspect]
     Indication: MULTIPLE SCLEROSIS
     Dosage: 30 MCG QW IM
     Route: 030
     Dates: start: 20030201, end: 20030101
  2. AVONEX [Suspect]
     Indication: MULTIPLE SCLEROSIS
     Dosage: 30 MCG QW IM
     Route: 030
     Dates: start: 20030101

REACTIONS (8)
  - CARTILAGE INJURY [None]
  - CONDITION AGGRAVATED [None]
  - FALL [None]
  - GASTROINTESTINAL HAEMORRHAGE [None]
  - HOT FLUSH [None]
  - HYPERHIDROSIS [None]
  - IRRITABLE BOWEL SYNDROME [None]
  - MULTIPLE SCLEROSIS [None]
